FAERS Safety Report 9769420 (Version 3)
Quarter: 2014Q1

REPORT INFORMATION
  Report Type: Report from Study
  Country: IT (occurrence: IT)
  Receive Date: 20131218
  Receipt Date: 20140108
  Transmission Date: 20141002
  Serious: Yes (Hospitalization)
  Sender: FDA-Public Use
  Company Number: IT-VERTEX PHARMACEUTICALS INC-2013-011767

PATIENT
  Age: 64 Year
  Sex: Male
  Weight: 77 kg

DRUGS (26)
  1. CYCLOSPORIN [Concomitant]
     Dosage: 25 MG, QD
     Route: 048
     Dates: start: 20130109, end: 20130113
  2. CYCLOSPORIN [Concomitant]
     Dosage: 25 MG, BID
     Route: 048
     Dates: start: 20130205, end: 20130219
  3. CYCLOSPORIN [Concomitant]
     Dosage: 35 MG, BID
     Route: 048
     Dates: start: 20130114, end: 20130204
  4. CYCLOSPORIN [Concomitant]
     Dosage: 35 MG, BID
     Route: 048
     Dates: start: 20130220, end: 20130401
  5. CYCLOSPORIN [Concomitant]
     Dosage: 75 MG, BID
     Route: 048
     Dates: start: 20130402, end: 20130404
  6. CYCLOSPORIN [Concomitant]
     Dosage: 60 MG, BID
     Route: 048
     Dates: start: 20130405, end: 20130501
  7. CYCLOSPORIN [Concomitant]
     Dosage: 75 MG, BID
     Route: 048
     Dates: start: 20130502, end: 20130527
  8. CYCLOSPORIN [Concomitant]
     Dosage: 80 MG, BID
     Route: 048
     Dates: start: 20130528, end: 20130531
  9. CYCLOSPORIN [Concomitant]
     Dosage: 75 MG, BID
     Route: 048
     Dates: start: 20130601, end: 20130701
  10. CYCLOSPORIN [Concomitant]
     Dosage: 75 MG, BID
     Route: 048
     Dates: start: 20131015, end: 20131025
  11. CYCLOSPORIN [Concomitant]
     Dosage: 60 MG, BID
     Route: 048
     Dates: start: 20131026
  12. MAGNESIUM [Concomitant]
     Indication: HYPOMAGNESAEMIA
     Dosage: 2250 MG, TID
     Route: 048
  13. OMEPRAZOLE [Concomitant]
     Indication: GASTROINTESTINAL DISORDER THERAPY
     Dosage: 20 MG, QD
     Route: 048
     Dates: start: 20130213, end: 20131025
  14. VX-950 (TELAPREVIR) [Suspect]
     Indication: HEPATITIS C
     Dosage: 2250 MG, TID
     Route: 048
     Dates: start: 20130108, end: 20130401
  15. Z-RIBAVIRIN [Suspect]
     Indication: HEPATITIS C
     Dosage: 600 MG, BID
     Dates: start: 20130820, end: 20130916
  16. Z-RIBAVIRIN [Suspect]
     Dosage: 600 MG, BID
     Dates: start: 20130108, end: 20130205
  17. Z-RIBAVIRIN [Suspect]
     Dosage: 400 MG, BID
     Dates: start: 20130206, end: 20130404
  18. Z-RIBAVIRIN [Suspect]
     Dosage: 600 MG, BID
     Dates: start: 20130405, end: 20130531
  19. Z-RIBAVIRIN [Suspect]
     Dosage: 800 MG, BID
     Dates: start: 20130601, end: 20130625
  20. Z-RIBAVIRIN [Suspect]
     Dosage: 400 MG, BID
     Dates: start: 20130626, end: 20130701
  21. Z-RIBAVIRIN [Suspect]
     Dosage: 600 MG, BID
     Dates: start: 20130702, end: 20130715
  22. Z-RIBAVIRIN [Suspect]
     Dosage: 400 MG, BID
     Dates: start: 20130716, end: 20130819
  23. Z-PEGYLATED INTERFERON-2A [Suspect]
     Indication: HEPATITIS C
     Dosage: 180 ?G, QW
     Route: 065
     Dates: start: 20130108, end: 20130916
  24. CYCLOSPORIN [Concomitant]
     Indication: PRODUCT USED FOR UNKNOWN INDICATION
     Dosage: 60 MG, UNK
     Route: 048
     Dates: start: 20130702, end: 20131014
  25. CYCLOSPORIN [Concomitant]
     Dosage: 150 MG, UNK
     Route: 048
     Dates: start: 20111111, end: 20130107
  26. CYCLOSPORIN [Concomitant]
     Dosage: 250 MG, QD
     Route: 048
     Dates: start: 20130108, end: 20130108

REACTIONS (1)
  - Listeriosis [Recovered/Resolved]
